FAERS Safety Report 25189454 (Version 1)
Quarter: 2025Q2

REPORT INFORMATION
  Report Type: Other
  Country: CN (occurrence: CN)
  Receive Date: 20250411
  Receipt Date: 20250411
  Transmission Date: 20250716
  Serious: Yes (Disabling)
  Sender: PARATEK PHARMACEUTICALS
  Company Number: CN-PARATEK PHARMACEUTICALS, INC.-2025PTK00432

PATIENT
  Age: 92 Year
  Sex: Male
  Weight: 70 kg

DRUGS (3)
  1. NUZYRA [Suspect]
     Active Substance: OMADACYCLINE
     Indication: Pneumonia
     Dosage: 0.1 G, QD
     Route: 041
     Dates: start: 20250328, end: 20250402
  2. CEFOPERAZONE SODIUM\SULBACTAM SODIUM [Suspect]
     Active Substance: CEFOPERAZONE SODIUM\SULBACTAM SODIUM
     Indication: Pneumonia
     Dosage: 3 G, Q12H
     Route: 041
     Dates: start: 20250327, end: 20250402
  3. VORICONAZOLE [Concomitant]
     Active Substance: VORICONAZOLE
     Dates: start: 20250325, end: 20250402

REACTIONS (2)
  - Blood fibrinogen decreased [Recovering/Resolving]
  - Platelet count decreased [Recovering/Resolving]

NARRATIVE: CASE EVENT DATE: 20250328
